FAERS Safety Report 4292915-2 (Version None)
Quarter: 2004Q1

REPORT INFORMATION
  Report Type: 
  Country: None (occurrence: None)
  Receive Date: 20040212
  Receipt Date: 20030724
  Transmission Date: 20041129
  Serious: No
  Sender: FDA-Public Use
  Company Number: US-GLAXOSMITHKLINE-A0418169A

PATIENT
  Age: 77 Year
  Sex: Female

DRUGS (7)
  1. PAXIL [Suspect]
     Indication: ANXIETY
     Dosage: 10MG PER DAY
     Route: 048
     Dates: start: 20020101
  2. LIPITOR [Concomitant]
  3. IMDUR [Concomitant]
  4. COREG [Concomitant]
  5. HYZAAR [Concomitant]
  6. SYNTHROID [Concomitant]
  7. ASPIRIN [Concomitant]

REACTIONS (1)
  - WEIGHT INCREASED [None]
